FAERS Safety Report 10677915 (Version 2)
Quarter: 2015Q2

REPORT INFORMATION
  Report Type: Spontaneous
  Country: RU (occurrence: RU)
  Receive Date: 20141229
  Receipt Date: 20150407
  Transmission Date: 20150821
  Serious: Yes (Other)
  Sender: FDA-Public Use
  Company Number: RU-BAYER-2014-188121

PATIENT
  Age: 19 Year
  Sex: Female

DRUGS (1)
  1. YAZ [Suspect]
     Active Substance: DROSPIRENONE\ETHINYL ESTRADIOL
     Indication: CONTRACEPTION
     Dosage: UNK
     Route: 048
     Dates: start: 201411

REACTIONS (6)
  - Nasopharyngitis [Recovered/Resolved]
  - Abnormal withdrawal bleeding [Recovered/Resolved]
  - Procedural haemorrhage [Recovered/Resolved]
  - Libido decreased [Recovered/Resolved]
  - Inappropriate schedule of drug administration [None]
  - Nausea [Recovered/Resolved]

NARRATIVE: CASE EVENT DATE: 2014
